FAERS Safety Report 5453964-1 (Version None)
Quarter: 2007Q3

REPORT INFORMATION
  Report Type: 
  Country: None (occurrence: None)
  Receive Date: 20070917
  Receipt Date: 20070228
  Transmission Date: 20080115
  Serious: No
  Sender: FDA-Public Use
  Company Number: US-ASTRAZENECA-2006UW00981

PATIENT
  Age: 14832 Day
  Sex: Female
  Weight: 95 kg

DRUGS (9)
  1. SEROQUEL [Suspect]
     Indication: PANIC DISORDER
     Dosage: 100 MG TO 200 MG
     Route: 048
     Dates: start: 19991101, end: 20010101
  2. SEROQUEL [Suspect]
     Indication: POST-TRAUMATIC STRESS DISORDER
     Dosage: 100 MG TO 200 MG
     Route: 048
     Dates: start: 19991101, end: 20010101
  3. RISPERDAL [Suspect]
  4. ZYPREXA [Suspect]
  5. THORAZINE [Concomitant]
  6. PROZAC [Concomitant]
  7. TRAZODONE HCL [Concomitant]
  8. TOPAMAX [Concomitant]
  9. CLOZARIL [Concomitant]

REACTIONS (6)
  - DIABETES MELLITUS [None]
  - DYSLIPIDAEMIA [None]
  - HYPERTENSION [None]
  - HYPERTRIGLYCERIDAEMIA [None]
  - NEUROPATHY [None]
  - WEIGHT INCREASED [None]
